FAERS Safety Report 12423008 (Version 1)
Quarter: 2016Q2

REPORT INFORMATION
  Report Type: Spontaneous
  Country: US (occurrence: None)
  Receive Date: 20160531
  Receipt Date: 20160531
  Transmission Date: 20160815
  Serious: Yes (Other)
  Sender: FDA-Public Use
  Company Number: None

PATIENT
  Age: 32 Year
  Sex: Female
  Weight: 56.7 kg

DRUGS (1)
  1. LOREAL PARIS VISIBLE LIFT BLUR FOUNDATION BROAD SPECTRUM SPF 18 SUNSCREEN [Suspect]
     Active Substance: OCTINOXATE
     Indication: PROPHYLAXIS AGAINST SOLAR RADIATION
     Dosage: 1.3 OUNCE(S)  AS NEEDED APPLIED TO A SURFACE, USUALLY THE SKIN
     Route: 061
     Dates: start: 20130530, end: 20160529

REACTIONS (5)
  - Application site burn [None]
  - Chemical injury [None]
  - Burns second degree [None]
  - Shock [None]
  - Burns first degree [None]

NARRATIVE: CASE EVENT DATE: 20160529
